FAERS Safety Report 4333016-4 (Version None)
Quarter: 2004Q2

REPORT INFORMATION
  Report Type: 
  Country: None (occurrence: None)
  Receive Date: 20040405
  Receipt Date: 20040405
  Transmission Date: 20050107
  Serious: Yes (Life-Threatening)
  Sender: FDA-Public Use
  Company Number: None

PATIENT
  Age: 63 Year
  Sex: Male
  Weight: 63.5036 kg

DRUGS (1)
  1. X-PREP-BOWEL EVACUANT MFG. PURDUE PHARMA LP -STAMFORD , CT [Suspect]
     Indication: COLONOSCOPY
     Dosage: 1/2 BOTTLE @ 1H ESP, 1/2 BOTTLE @ 3 H SIP
     Dates: start: 20040315

REACTIONS (10)
  - ANOREXIA [None]
  - ASTHENIA [None]
  - BACK PAIN [None]
  - BODY TEMPERATURE INCREASED [None]
  - MARKEDLY REDUCED DIETARY INTAKE [None]
  - MUSCLE CRAMP [None]
  - RETCHING [None]
  - VASCULAR INJURY [None]
  - VOMITING [None]
  - WEIGHT DECREASED [None]
